FAERS Safety Report 8511505-6 (Version None)
Quarter: 2012Q3

REPORT INFORMATION
  Report Type: 
  Country: None (occurrence: None)
  Receive Date: 20120710
  Receipt Date: 20120710
  Transmission Date: 20120928
  Serious: Yes (Other)
  Sender: FDA-Public Use
  Company Number: None

PATIENT
  Sex: Female
  Weight: 102.0593 kg

DRUGS (3)
  1. SYEDA [Suspect]
     Indication: ACNE
     Dosage: 1 PILL DAILY PO
     Route: 048
     Dates: start: 20120610, end: 20120630
  2. SYEDA [Suspect]
     Indication: POLYCYSTIC OVARIES
     Dosage: 1 PILL DAILY PO
     Route: 048
     Dates: start: 20120610, end: 20120630
  3. SYEDA [Suspect]
     Indication: CONTRACEPTION
     Dosage: 1 PILL DAILY PO
     Route: 048
     Dates: start: 20120610, end: 20120630

REACTIONS (5)
  - ABNORMAL BEHAVIOUR [None]
  - AGGRESSION [None]
  - MOOD ALTERED [None]
  - ANGER [None]
  - PRODUCT SUBSTITUTION ISSUE [None]
